FAERS Safety Report 6807345-6 (Version None)
Quarter: 2010Q2

REPORT INFORMATION
  Report Type: 
  Country: None (occurrence: None)
  Receive Date: 20100629
  Receipt Date: 20080911
  Transmission Date: 20101027
  Serious: No
  Sender: FDA-Public Use
  Company Number: US-PFIZER INC-2008071934

PATIENT
  Sex: Female
  Weight: 49.9 kg

DRUGS (3)
  1. CLINDAMYCIN PHOSPHATE [Suspect]
     Indication: ACNE
     Route: 061
     Dates: start: 20080818
  2. CLINDAMYCIN PHOSPHATE [Suspect]
     Indication: ROSACEA
  3. THYROID TAB [Concomitant]

REACTIONS (2)
  - ACNE [None]
  - HEADACHE [None]
